FAERS Safety Report 22596698 (Version 1)
Quarter: 2023Q2

REPORT INFORMATION
  Report Type: Spontaneous
  Country: CN (occurrence: CN)
  Receive Date: 20230613
  Receipt Date: 20230613
  Transmission Date: 20230721
  Serious: Yes (Life-Threatening, Other)
  Sender: FDA-Public Use
  Company Number: CN-009507513-2306CHN003693

PATIENT
  Age: 54 Year
  Sex: Male
  Weight: 62 kg

DRUGS (1)
  1. CILASTATIN SODIUM\IMIPENEM [Suspect]
     Active Substance: CILASTATIN SODIUM\IMIPENEM
     Indication: Pneumonia
     Dosage: 500 MG, Q8H
     Route: 041
     Dates: start: 20230518, end: 20230521

REACTIONS (3)
  - Diarrhoea [Recovering/Resolving]
  - Respiratory failure [Unknown]
  - Pneumonia [Unknown]

NARRATIVE: CASE EVENT DATE: 20230520
